FAERS Safety Report 5038516-X (Version None)
Quarter: 2006Q2

REPORT INFORMATION
  Report Type: 
  Country: None (occurrence: None)
  Receive Date: 20060629
  Receipt Date: 20060619
  Transmission Date: 20061013
  Serious: Yes (Other)
  Sender: FDA-Public Use
  Company Number: 2006AP02851

PATIENT
  Age: 80 Year
  Sex: Male

DRUGS (1)
  1. SEROQUEL [Suspect]
     Dosage: DURATION 3 - 6 MONTHS
     Route: 048

REACTIONS (1)
  - VISUAL DISTURBANCE [None]
